FAERS Safety Report 10597738 (Version 1)
Quarter: 2014Q4

REPORT INFORMATION
  Report Type: Spontaneous
  Country: US (occurrence: None)
  Receive Date: 20141030
  Receipt Date: 20141030
  Transmission Date: 20150529
  Serious: Yes (Other)
  Sender: FDA-Public Use
  Company Number: PHEH2013US021170

PATIENT
  Age: 11 Year
  Sex: Male

DRUGS (3)
  1. TRILEPTAL [Suspect]
     Active Substance: OXCARBAZEPINE
     Indication: SEIZURE
     Dosage: LOWER DOSE, ORAL
     Route: 048
     Dates: start: 20071027
  2. RISPERDAL [Suspect]
     Active Substance: RISPERIDONE
  3. PROZAC [Suspect]
     Active Substance: FLUOXETINE HYDROCHLORIDE

REACTIONS (6)
  - Seizure [None]
  - Muscle rigidity [None]
  - Dysphagia [None]
  - Self injurious behaviour [None]
  - Fall [None]
  - Speech disorder [None]

NARRATIVE: CASE EVENT DATE: 200711
